FAERS Safety Report 8034723 (Version 8)
Quarter: 2014Q3

REPORT INFORMATION
  Report Type: Report from Study
  Country: JP (occurrence: JP)
  Receive Date: 20110714
  Receipt Date: 20140905
  Transmission Date: 20150326
  Serious: No
  Sender: FDA-Public Use
  Company Number: PHHY2011JP60867

PATIENT
  Age: 54 Year
  Sex: Female

DRUGS (10)
  1. AMN107 [Suspect]
     Active Substance: NILOTINIB
     Dosage: 600 MG, DAILY
     Dates: start: 20131106
  2. PROMAC [Concomitant]
     Active Substance: NITROFURANTOIN
     Dosage: 150 MG, UNK
     Route: 048
     Dates: start: 20120301, end: 20130402
  3. CELESTAMINE [Suspect]
     Active Substance: BETAMETHASONE\DEXCHLORPHENIRAMINE MALEATE
     Dosage: 2 DF,
     Route: 048
     Dates: start: 20110203
  4. LENDORMIN [Concomitant]
     Active Substance: BROTIZOLAM
     Indication: INSOMNIA
     Dosage: 0.25 MG, UNK
     Route: 048
     Dates: start: 20110121
  5. CONIEL [Concomitant]
     Active Substance: BENIDIPINE HYDROCHLORIDE
     Indication: HYPERURICAEMIA
     Dosage: 2 MG, DAILY
     Route: 048
     Dates: start: 20110620
  6. GASTER [Concomitant]
     Active Substance: FAMOTIDINE
     Dosage: 20 MG, UNK
     Route: 048
     Dates: start: 20130820
  7. DIOVAN [Concomitant]
     Active Substance: VALSARTAN
     Indication: HYPERTENSION
     Dosage: 80 MG, UNK
     Route: 048
     Dates: start: 20110121, end: 20110414
  8. DIOVAN [Concomitant]
     Active Substance: VALSARTAN
     Dosage: 40 MG, UNK
     Route: 048
  9. AMN107 [Suspect]
     Active Substance: NILOTINIB
     Indication: CHRONIC MYELOID LEUKAEMIA
     Dosage: 800 MG, DAILY
     Dates: start: 20110121, end: 20130228
  10. AMN107 [Suspect]
     Active Substance: NILOTINIB
     Dosage: 400 MG, DAILY
     Dates: start: 20131009, end: 20131105

REACTIONS (3)
  - Electrocardiogram QT prolonged [Unknown]
  - Gamma-glutamyltransferase increased [Not Recovered/Not Resolved]
  - Blood glucose increased [Not Recovered/Not Resolved]

NARRATIVE: CASE EVENT DATE: 20110203
